FAERS Safety Report 5450646-7 (Version None)
Quarter: 2007Q3

REPORT INFORMATION
  Report Type: 
  Country: None (occurrence: None)
  Receive Date: 20070910
  Receipt Date: 20070828
  Transmission Date: 20080115
  Serious: Yes (Hospitalization, Other)
  Sender: FDA-Public Use
  Company Number: 237234K07USA

PATIENT
  Age: 50 Year
  Sex: Female

DRUGS (2)
  1. REBIF [Suspect]
     Indication: MULTIPLE SCLEROSIS
     Dosage: 44 MCG, 3 IN WEEKS, SUBCUTANEOUS
     Route: 058
     Dates: start: 20060227
  2. NOVANTRONE [Concomitant]

REACTIONS (5)
  - FALL [None]
  - LUNG INJURY [None]
  - MULTIPLE SCLEROSIS [None]
  - RIB FRACTURE [None]
  - SPLENIC RUPTURE [None]
